FAERS Safety Report 4714212-0 (Version None)
Quarter: 2005Q3

REPORT INFORMATION
  Report Type: 
  Country: None (occurrence: None)
  Receive Date: 20050714
  Receipt Date: 20050531
  Transmission Date: 20060218
  Serious: Yes (Life-Threatening)
  Sender: FDA-Public Use
  Company Number: 2005AP03146

PATIENT
  Age: 20076 Day
  Sex: Female
  Weight: 36.2 kg

DRUGS (13)
  1. DIPRIVAN [Suspect]
     Indication: GENERAL ANAESTHESIA
     Route: 042
     Dates: start: 20050510, end: 20050510
  2. TAKEPRON [Concomitant]
     Route: 048
     Dates: start: 20050415
  3. LAUGHING GAS [Concomitant]
     Indication: MAINTENANCE OF ANAESTHESIA
     Route: 055
     Dates: start: 20050510, end: 20050510
  4. MUSCULAX [Concomitant]
     Indication: HYPOTONIA
     Route: 042
     Dates: start: 20050510, end: 20050510
  5. ATROPINE SULFATE [Concomitant]
     Indication: SEDATION
     Route: 030
     Dates: start: 20050510, end: 20050510
  6. ATARAX [Concomitant]
     Indication: SEDATION
     Route: 030
     Dates: start: 20050510, end: 20050510
  7. UNASYN [Concomitant]
     Dates: start: 20050510, end: 20050510
  8. SEVOFLURANE [Concomitant]
     Indication: MAINTENANCE OF ANAESTHESIA
     Route: 055
     Dates: start: 20050510, end: 20050510
  9. FENTANEST [Concomitant]
     Indication: ANALGESIC THERAPY
     Dates: start: 20050510, end: 20050510
  10. EPHEDRIN [Concomitant]
     Indication: PROCEDURAL HYPOTENSION
     Route: 042
     Dates: start: 20050510, end: 20050510
  11. VAGOSTIGMIN [Concomitant]
     Dates: start: 20050510, end: 20050510
  12. ALFAROL [Concomitant]
     Indication: HYPERPARATHYROIDISM SECONDARY
     Route: 048
  13. MUCOSTA [Concomitant]
     Route: 048

REACTIONS (2)
  - HYPERKALAEMIA [None]
  - POST PROCEDURAL COMPLICATION [None]
